FAERS Safety Report 12460099 (Version 3)
Quarter: 2016Q4

REPORT INFORMATION
  Report Type: Spontaneous
  Country: US (occurrence: US)
  Receive Date: 20160613
  Receipt Date: 20161230
  Transmission Date: 20170207
  Serious: No
  Sender: FDA-Public Use
  Company Number: US-PFIZER INC-2016219760

PATIENT
  Age: 60 Year
  Sex: Female

DRUGS (37)
  1. BOSULIF [Suspect]
     Active Substance: BOSUTINIB MONOHYDRATE
     Dosage: UNK
  2. PRAVACHOL [Concomitant]
     Active Substance: PRAVASTATIN SODIUM
     Dosage: 10 MG, 1X/DAY
     Route: 048
  3. ZANTAC [Concomitant]
     Active Substance: RANITIDINE HYDROCHLORIDE
     Dosage: 150 MG, 2X/DAY
     Route: 048
  4. TESSALON [Concomitant]
     Active Substance: BENZONATATE
     Indication: COUGH
     Dosage: 200 MG, AS NEEDED (EVERY 8 HOURS AS NEEDED)
     Route: 048
  5. NORCO [Concomitant]
     Active Substance: ACETAMINOPHEN\HYDROCODONE BITARTRATE
     Indication: PAIN
     Dosage: 5-325 AS NEEDED UNK (HYDROCODONE BITARTRATE 5MG, PARACETAMOL 325MG)( TAKE 1-2 TABLETS/ EVERY 6 HOUR)
     Route: 048
  6. COMPAZINE [Concomitant]
     Active Substance: PROCHLORPERAZINE MALEATE
     Indication: VOMITING
  7. ADVAIR HFA [Concomitant]
     Active Substance: FLUTICASONE PROPIONATE\SALMETEROL XINAFOATE
     Dosage: UNK, 2X/DAY (FLUTICASONE PROPIONATE 500MCG, SALMETEROL XINAFOATE 50MCG)
     Route: 048
  8. LIORESAL [Concomitant]
     Active Substance: BACLOFEN
     Indication: MUSCLE SPASMS
     Dosage: 10 MG, AS NEEDED (3 TIMES A DAY AS NEEDED)
     Route: 048
  9. AYR [Concomitant]
     Indication: NASAL CONGESTION
     Dosage: 1.30 %, AS NEEDED (EVERY 2 HOURS AS NEEDED)
     Route: 045
  10. ROBITUSSIN AC [Concomitant]
     Active Substance: CODEINE PHOSPHATE\GUAIFENESIN
     Indication: COUGH
     Dosage: 5 ML, AS NEEDED (CODEINE 10MG/5ML /GUALFENESIN 100MG)(EVERY 4 TO 6 HOURS AS NEEDED)
     Route: 048
  11. PLAVIX [Concomitant]
     Active Substance: CLOPIDOGREL BISULFATE
     Dosage: 75 MG, 1X/DAY (EVERY NIGHT AT BEDTIME)
     Route: 048
  12. TYLENOL [Concomitant]
     Active Substance: ACETAMINOPHEN
     Indication: PAIN
     Dosage: 1000 MG, AS NEEDED  (3 TIMES A DAY AS NEEDED)
     Route: 048
  13. PROAIR HFA [Concomitant]
     Active Substance: ALBUTEROL SULFATE
     Indication: WHEEZING
     Dosage: UNK UNK, AS NEEDED  (INHALE 2 PUFFS ORALLY EVERY 4 TO 6 HOURS AS NEEDED)
     Route: 048
  14. MYLANTA [Concomitant]
     Active Substance: ALUMINUM HYDROXIDE\DIMETHICONE\MAGNESIUM HYDROXIDE
     Indication: ABDOMINAL DISCOMFORT
  15. COMPAZINE [Concomitant]
     Active Substance: PROCHLORPERAZINE MALEATE
     Indication: NAUSEA
     Dosage: 10 MG, AS NEEDED (EVERY 8 HOURS AS NEEDED)
     Route: 048
  16. VISTARIL [Concomitant]
     Active Substance: HYDROXYZINE PAMOATE
     Indication: PRURITUS
     Dosage: 25 MG, AS NEEDED (EVERY 6 HOURS AS NEEDED)
     Route: 048
  17. CHERATUSSIN AC [Concomitant]
     Active Substance: CODEINE PHOSPHATE\GUAIFENESIN
     Indication: COUGH
     Dosage: 5 ML, AS NEEDED (CODEINE 10MG/5ML /GUALFENESIN 100MG)(EVERY 4 TO 6 HOURS AS NEEDED)
     Route: 048
  18. MAALOX ANTACID [Concomitant]
     Active Substance: ALUMINUM HYDROXIDE\DIMETHICONE\MAGNESIUM HYDROXIDE
     Indication: DYSPEPSIA
     Dosage: 30 ML, AS NEEDED (ALUMINIUM HYDROXIDE 200MG, MAGNESIUM HYDROXIDE 20MG) (3 TIMES A DAY)
     Route: 048
  19. NILSTAT [Concomitant]
     Active Substance: NYSTATIN
     Indication: PRURITUS
     Dosage: UNK, AS NEEDED (APPLY 1 APPLICATION)
     Route: 061
  20. SYSTANE (HYPROMELLOSE 2910 (4000 MPA.S)) [Concomitant]
     Active Substance: HYPROMELLOSE 2910 (4000 MPA.S)
     Indication: DRY EYE
     Dosage: UNK, AS NEEDED (0.4-0.3% SOLN) (PLACE 2 DROPS INTO BOTH EYES EVERY 4 HOURS)
     Route: 047
  21. COZAAR [Concomitant]
     Active Substance: LOSARTAN POTASSIUM
     Dosage: 25 MG, 1X/DAY
     Route: 048
  22. BOSULIF [Suspect]
     Active Substance: BOSUTINIB MONOHYDRATE
     Dosage: 100 MG, WEEKLY
  23. TASIGNA [Concomitant]
     Active Substance: NILOTINIB
     Dosage: 400 MG, 2X/DAY
     Route: 048
  24. NIZORAL [Concomitant]
     Active Substance: KETOCONAZOLE
     Indication: RASH
     Dosage: 2 %, 2X/DAY (APPLY TO RASH UNDER LEFT BREAST)
     Route: 061
  25. MAALOX ANTACID [Concomitant]
     Active Substance: ALUMINUM HYDROXIDE\DIMETHICONE\MAGNESIUM HYDROXIDE
     Indication: ABDOMINAL DISCOMFORT
  26. TEMOVATE [Concomitant]
     Active Substance: CLOBETASOL PROPIONATE
     Indication: PRURITUS
     Dosage: 0.05 %,  AS NEEDED (1 APPLICATION TO AFFECTED AREA 2 TIMES A DAY AS NEED)
  27. BOSULIF [Suspect]
     Active Substance: BOSUTINIB MONOHYDRATE
     Dosage: 500 MG, UNK
  28. MYLANTA [Concomitant]
     Active Substance: ALUMINUM HYDROXIDE\DIMETHICONE\MAGNESIUM HYDROXIDE
     Indication: DYSPEPSIA
     Dosage: 30 ML, AS NEEDED (ALUMINIUM HYDROXIDE GEL 200MG, DRIED, MAGNESIUM HYDROXIDE 200MG, SIMETICONE 5MG)
     Route: 048
  29. NILSTAT [Concomitant]
     Active Substance: NYSTATIN
     Indication: RASH
  30. MONISTAT 3 [Concomitant]
     Active Substance: MICONAZOLE NITRATE
     Dosage: 4 %, 1X/DAY (APPLY SMALL AMOUNT TO THE EXTERNAL PERINEAL AREA 2 TIMES A DAY FOR 7 DAYS)
     Route: 067
  31. GOLD BOND ORIGINAL STRENGTH POWDER [Concomitant]
     Active Substance: MENTHOL\ZINC OXIDE
     Indication: PRURITUS
     Dosage: UNK, AS NEEDED (3 TIMES A DAY AS NEEDED)
     Route: 061
  32. BOSULIF [Suspect]
     Active Substance: BOSUTINIB MONOHYDRATE
     Dosage: 100 MG, DAILY
     Route: 048
  33. BOSULIF [Suspect]
     Active Substance: BOSUTINIB MONOHYDRATE
     Dosage: 200 MG, DAILY
  34. NASONEX [Concomitant]
     Active Substance: MOMETASONE FUROATE
     Dosage: 100 UG, 1X/DAY (SPRAY 2 SPRAYS INTO EACH NOSTRIL 1 TIME PER DAY)
     Route: 045
  35. LASIX [Concomitant]
     Active Substance: FUROSEMIDE
     Indication: FLUID RETENTION
     Dosage: 20 MG, AS NEEDED (TWICE DAILY AS NEEDED)
     Route: 048
  36. PROVENTIL [Concomitant]
     Active Substance: ALBUTEROL
     Indication: WHEEZING
     Dosage: UNK UNK, AS NEEDED  (INHALE 2 PUFFS ORALLY EVERY 4 TO 6 HOURS AS NEEDED)
     Route: 048
  37. OCEAN SALINE NASAL SPRAY [Concomitant]
     Active Substance: SODIUM CHLORIDE
     Indication: NASAL CONGESTION
     Dosage: 1.30 %, AS NEEDED (EVERY 2 HOURS)
     Route: 045

REACTIONS (3)
  - Diarrhoea [Unknown]
  - Dysphonia [Not Recovered/Not Resolved]
  - Cough [Not Recovered/Not Resolved]
